FAERS Safety Report 4645743-X (Version None)
Quarter: 2005Q2

REPORT INFORMATION
  Report Type: 
  Country: None (occurrence: None)
  Receive Date: 20050425
  Receipt Date: 20050425
  Transmission Date: 20051028
  Serious: Yes (Other)
  Sender: FDA-Public Use
  Company Number: None

PATIENT
  Sex: Female
  Weight: 92 kg

DRUGS (3)
  1. ALL-TRANS RETINOIC ACID [Suspect]
     Dosage: 22.5 MG/M2 PO BID Q12H STARTING ON DAY 1, FOR A MAXIMUM OF 90 DAYS
     Route: 048
     Dates: start: 20050218, end: 20050420
  2. DAUNOMYCIN [Suspect]
     Dosage: 50 MG/M2 IV BOLUS OVER 5-10 MIN QD ON DAYS 3-6. NOTE FOR 3-14 YRS - IV BOLUS OVER 15-30 M
     Route: 040
  3. CYTARABINE [Suspect]
     Dosage: 200 MG/M2/DAY CIV FOR 7 DAYS STARTING ON DAY 3
     Route: 042

REACTIONS (1)
  - CARDIAC FAILURE CONGESTIVE [None]
